FAERS Safety Report 4989398-3 (Version None)
Quarter: 2006Q2

REPORT INFORMATION
  Report Type: 
  Country: None (occurrence: None)
  Receive Date: 20060425
  Receipt Date: 20060417
  Transmission Date: 20061013
  Serious: Yes (Other)
  Sender: FDA-Public Use
  Company Number: 2006051994

PATIENT
  Age: 69 Year
  Sex: Male
  Weight: 79.8331 kg

DRUGS (4)
  1. LIPITOR [Suspect]
     Indication: BLOOD CHOLESTEROL INCREASED
     Dosage: 40 MG (40 MG, 1 IN 1 D)
     Dates: start: 19900101
  2. TENORMIN [Concomitant]
  3. LISINOPRIL [Concomitant]
  4. PERCOGESIC                 (PARACETAMOL, PHENYLTOLOXAMINE  CITRATE) [Concomitant]

REACTIONS (5)
  - CARDIAC FIBRILLATION [None]
  - FORMICATION [None]
  - HYPOAESTHESIA [None]
  - MYOCARDIAL INFARCTION [None]
  - SCAR [None]
